FAERS Safety Report 8278068-4 (Version None)
Quarter: 2012Q2

REPORT INFORMATION
  Report Type: 
  Country: None (occurrence: None)
  Receive Date: 20120412
  Receipt Date: 20120411
  Transmission Date: 20120825
  Serious: Yes (Hospitalization)
  Sender: FDA-Public Use
  Company Number: JP-FRI-1000026610

PATIENT
  Age: 88 Year

DRUGS (4)
  1. MEMANTINE [Suspect]
     Dosage: 10 MG
  2. MEMANTINE [Suspect]
     Dosage: 15 MG
  3. MEMANTINE [Suspect]
     Indication: DEMENTIA ALZHEIMER'S TYPE
     Dosage: 5 MG
     Dates: start: 20110801
  4. MEMANTINE [Suspect]
     Dosage: 20 MG

REACTIONS (5)
  - SOMNOLENCE [None]
  - FRACTURE [None]
  - FALL [None]
  - HALLUCINATION [None]
  - THINKING ABNORMAL [None]
